FAERS Safety Report 9523127 (Version 2)
Quarter: 2014Q3

REPORT INFORMATION
  Report Type: Spontaneous
  Country: US (occurrence: US)
  Receive Date: 20130913
  Receipt Date: 20140819
  Transmission Date: 20150326
  Serious: Yes (Hospitalization, Other)
  Sender: FDA-Public Use
  Company Number: US-009507513-1309USA004631

PATIENT
  Sex: Female

DRUGS (1)
  1. NUVARING [Suspect]
     Active Substance: ETHINYL ESTRADIOL\ETONOGESTREL
     Dosage: UNK
     Route: 067
     Dates: start: 20090423, end: 20090911

REACTIONS (6)
  - Cerebrovascular accident [Unknown]
  - Pituitary haemorrhage [Unknown]
  - Hypoxic-ischaemic encephalopathy [Recovering/Resolving]
  - Pulseless electrical activity [Recovered/Resolved]
  - Pulmonary embolism [Unknown]
  - Peripheral embolism [Unknown]

NARRATIVE: CASE EVENT DATE: 200909
